FAERS Safety Report 12495024 (Version 1)
Quarter: 2016Q2

REPORT INFORMATION
  Report Type: Spontaneous
  Country: US (occurrence: None)
  Receive Date: 20160623
  Receipt Date: 20160623
  Transmission Date: 20160815
  Serious: Yes (Hospitalization)
  Sender: FDA-Public Use
  Company Number: None

PATIENT
  Age: 65 Year
  Sex: Male

DRUGS (1)
  1. AMIODARONE [Suspect]
     Active Substance: AMIODARONE
     Indication: ATRIAL FIBRILLATION
     Route: 048
     Dates: start: 20160503

REACTIONS (12)
  - Confusional state [None]
  - Memory impairment [None]
  - Tachyphrenia [None]
  - Treatment noncompliance [None]
  - Disorientation [None]
  - Hyponatraemia [None]
  - Fall [None]
  - Thyroid disorder [None]
  - Toxicity to various agents [None]
  - Abnormal behaviour [None]
  - Hyperglycaemia [None]
  - Drug interaction [None]

NARRATIVE: CASE EVENT DATE: 20160506
